FAERS Safety Report 13960253 (Version 2)
Quarter: 2017Q3

REPORT INFORMATION
  Report Type: Spontaneous
  Country: US (occurrence: US)
  Receive Date: 20170912
  Receipt Date: 20170921
  Transmission Date: 20171128
  Serious: No
  Sender: FDA-Public Use
  Company Number: US-PFIZER INC-2017393988

PATIENT
  Age: 68 Year
  Sex: Female
  Weight: 71.2 kg

DRUGS (2)
  1. IBRANCE [Suspect]
     Active Substance: PALBOCICLIB
     Dosage: 100 MG, UNK
  2. IBRANCE [Suspect]
     Active Substance: PALBOCICLIB
     Indication: BREAST CANCER METASTATIC
     Dosage: 125 MG, CYCLIC (D 1 - 21 Q 28 DAYS)
     Route: 048
     Dates: start: 20170826

REACTIONS (6)
  - Condition aggravated [Unknown]
  - Intentional product misuse [Unknown]
  - Chest discomfort [Recovering/Resolving]
  - Dyspepsia [Recovering/Resolving]
  - White blood cell count decreased [Unknown]
  - Alopecia [Unknown]
